FAERS Safety Report 24591742 (Version 1)
Quarter: 2024Q4

REPORT INFORMATION
  Report Type: Spontaneous
  Country: US (occurrence: US)
  Receive Date: 20241108
  Receipt Date: 20241108
  Transmission Date: 20250115
  Serious: No
  Sender: ROCHE
  Company Number: US-ROCHE-10000121826

PATIENT
  Age: 29 Year
  Sex: Female

DRUGS (6)
  1. CELLCEPT [Suspect]
     Active Substance: MYCOPHENOLATE MOFETIL
     Indication: Product used for unknown indication
     Route: 048
  2. HYALURONATE SODIUM [Concomitant]
     Active Substance: HYALURONATE SODIUM
     Dates: start: 2019
  3. EDTA CHELATOR COMPLEX [Concomitant]
     Dosage: -2020 AND 2014
  4. INFLECTRA [Concomitant]
     Active Substance: INFLIXIMAB-DYYB
  5. DUREZOL [Concomitant]
     Active Substance: DIFLUPREDNATE
  6. ATROPINE [Concomitant]
     Active Substance: ATROPINE

REACTIONS (1)
  - Glaucoma [Unknown]
